FAERS Safety Report 9024048 (Version 3)
Quarter: 2013Q1

REPORT INFORMATION
  Report Type: Spontaneous
  Country: AU (occurrence: AU)
  Receive Date: 20130122
  Receipt Date: 20130318
  Transmission Date: 20140127
  Serious: Yes (Hospitalization)
  Sender: FDA-Public Use
  Company Number: AU-BIOGENIDEC-2013BI005157

PATIENT
  Age: 19 Year
  Sex: Female

DRUGS (1)
  1. TYSABRI [Suspect]
     Indication: MULTIPLE SCLEROSIS
     Route: 042
     Dates: start: 20101025

REACTIONS (7)
  - Abortion spontaneous [Unknown]
  - Endometritis [Unknown]
  - Suprapubic pain [Unknown]
  - Vomiting [Unknown]
  - Vaginal haemorrhage [Unknown]
  - Chills [Unknown]
  - Dizziness [Unknown]
